FAERS Safety Report 6081977-8 (Version None)
Quarter: 2009Q1

REPORT INFORMATION
  Report Type: 
  Country: None (occurrence: None)
  Receive Date: 20090218
  Receipt Date: 20080708
  Transmission Date: 20090719
  Serious: No
  Sender: FDA-Public Use
  Company Number: US-BRISTOL-MYERS SQUIBB COMPANY-14253777

PATIENT
  Age: 69 Year
  Sex: Male
  Weight: 158 kg

DRUGS (11)
  1. GLUCOVANCE [Suspect]
     Dates: start: 20050101, end: 20060101
  2. GLUCOPHAGE [Suspect]
     Dosage: THERAPY DATES: 2005 TO 2006 APR-2007 TO UNK - (850MG BID)
     Route: 048
     Dates: start: 20050101, end: 20060101
  3. TERAZOSIN HCL [Suspect]
  4. BYETTA [Suspect]
  5. AMARYL [Suspect]
     Indication: TYPE 2 DIABETES MELLITUS
     Dates: start: 20080101
  6. LANTUS [Suspect]
     Indication: TYPE 2 DIABETES MELLITUS
     Dosage: THERAPY DATES:2005-UNKN;UNKN-NOV07 JAN-2008: DOSE INCREASED TO 40UNITS
     Route: 058
     Dates: start: 20050101
  7. PRAVASTATIN SODIUM [Concomitant]
  8. ATENOLOL [Concomitant]
  9. ASPIRIN [Concomitant]
  10. FUROSEMIDE [Concomitant]
  11. ALLOPURINOL [Concomitant]

REACTIONS (9)
  - BLOOD GLUCOSE DECREASED [None]
  - BLOOD GLUCOSE INCREASED [None]
  - DIZZINESS POSTURAL [None]
  - DYSSTASIA [None]
  - EPISTAXIS [None]
  - HYPERHIDROSIS [None]
  - TREMOR [None]
  - WEIGHT DECREASED [None]
  - WEIGHT INCREASED [None]
